FAERS Safety Report 9517317 (Version 1)
Quarter: 2013Q1

REPORT INFORMATION
  Report Type: Spontaneous
  Country: US (occurrence: None)
  Receive Date: 20130305
  Receipt Date: 20130305
  Transmission Date: 20140127
  Serious: Yes (Other)
  Sender: FDA-Public Use
  Company Number: 163-21880-12122050

PATIENT
  Age: 57 Year
  Sex: Male
  Weight: 84.28 kg

DRUGS (5)
  1. REVLIMID [Suspect]
     Indication: PLASMA CELL MYELOMA
     Dosage: 21 IN 21 DAYS
     Route: 048
     Dates: start: 20121021, end: 20121114
  2. ADVIL (IBUPROFEN) (UNKNOWN) [Concomitant]
  3. ASA (ACETYLSALICYLIC ACID) (UNKNOWN) [Concomitant]
  4. DEXAMETHASONE (DEXAMETHASONE) (UNKNOWN) [Concomitant]
  5. KLONOPIN (CLONZEPAM) (UNKNOWN) [Concomitant]

REACTIONS (1)
  - Hepatic enzyme increased [None]
